FAERS Safety Report 7070583-4 (Version None)
Quarter: 2010Q4

REPORT INFORMATION
  Report Type: 
  Country: None (occurrence: None)
  Receive Date: 20101027
  Receipt Date: 20101027
  Transmission Date: 20110411
  Serious: Yes (Other)
  Sender: FDA-Public Use
  Company Number: None

PATIENT
  Age: 68 Year
  Sex: Female
  Weight: 80.2867 kg

DRUGS (5)
  1. PENTASA 500MG CR SHIRE US-CVS/CAREMARK [Suspect]
     Indication: CROHN'S DISEASE
     Dosage: 1 CAPSULE 3 TIMES DAILY PO
     Route: 048
  2. PREVACID [Suspect]
     Indication: GASTROOESOPHAGEAL REFLUX DISEASE
     Dosage: 1 CAPSULE 2 TIMES DAILY PO
     Route: 048
  3. HYOMAX-SL [Concomitant]
  4. TRIAMTERENE AND HYDROCHLOROTHIAZIDE [Concomitant]
  5. GEMFIBROZIL [Concomitant]

REACTIONS (9)
  - CONTUSION [None]
  - HAEMORRHAGE [None]
  - HYPERSENSITIVITY [None]
  - IMPAIRED HEALING [None]
  - MUSCLE SPASMS [None]
  - PRURITUS [None]
  - RASH [None]
  - TENDERNESS [None]
  - URTICARIA [None]
